FAERS Safety Report 11189891 (Version 3)
Quarter: 2019Q3

REPORT INFORMATION
  Report Type: Spontaneous
  Country: US (occurrence: US)
  Receive Date: 20150615
  Receipt Date: 20190708
  Transmission Date: 20191004
  Serious: No
  Sender: FDA-Public Use
  Company Number: US-PFIZER INC-2015194255

PATIENT
  Age: 74 Year
  Sex: Female

DRUGS (3)
  1. AVAPRO [Suspect]
     Active Substance: IRBESARTAN
     Dosage: UNK
  2. ADALAT [Suspect]
     Active Substance: NIFEDIPINE
     Dosage: UNK
  3. NORVASC [Suspect]
     Active Substance: AMLODIPINE BESYLATE
     Dosage: UNK

REACTIONS (1)
  - Drug hypersensitivity [Unknown]
